FAERS Safety Report 4557927-X (Version None)
Quarter: 2005Q1

REPORT INFORMATION
  Report Type: 
  Country: None (occurrence: None)
  Receive Date: 20050121
  Receipt Date: 20040130
  Transmission Date: 20050727
  Serious: No
  Sender: FDA-Public Use
  Company Number: US-BRISTOL-MYERS SQUIBB COMPANY-12495644

PATIENT
  Age: 25 Year
  Sex: Female

DRUGS (7)
  1. SERZONE [Suspect]
     Route: 048
  2. XANAX [Concomitant]
     Indication: ANXIETY
  3. ZYPREXA [Concomitant]
  4. NEURONTIN [Concomitant]
  5. DEPAKOTE [Concomitant]
  6. REMERON [Concomitant]
  7. LEXAPRO [Concomitant]

REACTIONS (2)
  - ALANINE AMINOTRANSFERASE INCREASED [None]
  - ASPARTATE AMINOTRANSFERASE INCREASED [None]
